FAERS Safety Report 7487970-2 (Version None)
Quarter: 2011Q2

REPORT INFORMATION
  Report Type: 
  Country: None (occurrence: None)
  Receive Date: 20110518
  Receipt Date: 20110513
  Transmission Date: 20111010
  Serious: No
  Sender: FDA-Public Use
  Company Number: US-PFIZER INC-2011103420

PATIENT
  Sex: Female

DRUGS (1)
  1. GEODON [Suspect]
     Dosage: UNK

REACTIONS (2)
  - VAGINAL HAEMORRHAGE [None]
  - BREAST TENDERNESS [None]
